FAERS Safety Report 4394647-9 (Version None)
Quarter: 2004Q3

REPORT INFORMATION
  Report Type: 
  Country: None (occurrence: None)
  Receive Date: 20040706
  Receipt Date: 20040623
  Transmission Date: 20050211
  Serious: Yes (Hospitalization, Other)
  Sender: FDA-Public Use
  Company Number: 2004042713

PATIENT
  Age: 22 Year
  Sex: Female

DRUGS (2)
  1. VIRACEPT [Suspect]
     Indication: HIV INFECTION
     Dosage: 625 MG (625 MG, 1 IN 1 D), ORAL
     Route: 048
  2. ZIDOVUDINE W/LAMIVUDINE [Concomitant]

REACTIONS (5)
  - ANAPHYLACTOID REACTION [None]
  - DRUG EXPOSURE DURING PREGNANCY [None]
  - RASH [None]
  - SKIN REACTION [None]
  - SWELLING [None]
